FAERS Safety Report 18719378 (Version 1)
Quarter: 2021Q1

REPORT INFORMATION
  Report Type: Spontaneous
  Country: CA (occurrence: CA)
  Receive Date: 20210108
  Receipt Date: 20210108
  Transmission Date: 20210419
  Serious: Yes (Hospitalization)
  Sender: FDA-Public Use
  Company Number: CA-TEVA-2020-CA-1865577

PATIENT
  Age: 7 Year
  Sex: Male
  Weight: 32 kg

DRUGS (12)
  1. DOXORUBICIN HYDROCHLORIDE INJECTION: [Suspect]
     Active Substance: DOXORUBICIN HYDROCHLORIDE
     Route: 065
  2. VINCRISTINE SULFATE. [Suspect]
     Active Substance: VINCRISTINE SULFATE
     Route: 065
  3. ACETAMINOPHEN. [Concomitant]
     Active Substance: ACETAMINOPHEN
  4. LORAZEPAM. [Concomitant]
     Active Substance: LORAZEPAM
  5. ONDANSETRON [Concomitant]
     Active Substance: ONDANSETRON
  6. DIPHENHYDRAMINE. [Concomitant]
     Active Substance: DIPHENHYDRAMINE
  7. METHOTREXATE. [Suspect]
     Active Substance: METHOTREXATE
     Route: 058
  8. FOLIC ACID. [Concomitant]
     Active Substance: FOLIC ACID
  9. PREDNISONE. [Suspect]
     Active Substance: PREDNISONE
     Route: 065
  10. RITUXAN [Suspect]
     Active Substance: RITUXIMAB
     Indication: BURKITT^S LYMPHOMA STAGE III
     Route: 065
  11. FILGRASTIM [Concomitant]
     Active Substance: FILGRASTIM
  12. METOCLOPRAMIDE. [Concomitant]
     Active Substance: METOCLOPRAMIDE

REACTIONS (1)
  - Febrile neutropenia [Recovered/Resolved]
